FAERS Safety Report 10154401 (Version 1)
Quarter: 2014Q2

REPORT INFORMATION
  Report Type: Spontaneous
  Country: US (occurrence: US)
  Receive Date: 20140506
  Receipt Date: 20140506
  Transmission Date: 20141212
  Serious: No
  Sender: FDA-Public Use
  Company Number: US-PFIZER INC-2014120879

PATIENT
  Sex: 0

DRUGS (5)
  1. CLEOCIN [Suspect]
     Dosage: UNK
  2. MINOCIN [Suspect]
     Dosage: UNK
  3. IMITREX [Suspect]
     Dosage: UNK
  4. DYAZIDE [Suspect]
     Dosage: UNK
  5. AUGMENTIN [Suspect]
     Dosage: UNK

REACTIONS (1)
  - Drug hypersensitivity [Unknown]
